FAERS Safety Report 12666843 (Version 1)
Quarter: 2016Q3

REPORT INFORMATION
  Report Type: Spontaneous
  Country: TW (occurrence: TW)
  Receive Date: 20160819
  Receipt Date: 20160819
  Transmission Date: 20161109
  Serious: Yes (Other)
  Sender: FDA-Public Use
  Company Number: TW-AMGEN-TWNSP2016107528

PATIENT
  Age: 64 Year
  Sex: Female

DRUGS (2)
  1. ENBREL [Suspect]
     Active Substance: ETANERCEPT
     Indication: PSORIATIC ARTHROPATHY
     Dosage: 25 MG, BIW
     Route: 058
     Dates: start: 20131111
  2. SALAZINE [Concomitant]
     Active Substance: SULFASALAZINE
     Dosage: 500 MG, QD
     Route: 048
     Dates: start: 20160801

REACTIONS (1)
  - Sleep apnoea syndrome [Unknown]
